FAERS Safety Report 5276777-2 (Version None)
Quarter: 2007Q1

REPORT INFORMATION
  Report Type: 
  Country: None (occurrence: None)
  Receive Date: 20070321
  Receipt Date: 20070102
  Transmission Date: 20070707
  Serious: Yes (Hospitalization)
  Sender: FDA-Public Use
  Company Number: 230028K07USA

PATIENT
  Age: 51 Year
  Sex: Female

DRUGS (1)
  1. REBIF [Suspect]
     Indication: MULTIPLE SCLEROSIS
     Dosage: 44 MCG, 3 IN 1 WEEKS, SUBCUTANEOUS
     Route: 058
     Dates: start: 20060421, end: 20061201

REACTIONS (5)
  - BRAIN DAMAGE [None]
  - COMA [None]
  - DRUG DOSE OMISSION [None]
  - LUNG INJURY [None]
  - ROAD TRAFFIC ACCIDENT [None]
